FAERS Safety Report 21221938 (Version 1)
Quarter: 2022Q3

REPORT INFORMATION
  Report Type: Spontaneous
  Country: US (occurrence: US)
  Receive Date: 20220817
  Receipt Date: 20220817
  Transmission Date: 20221026
  Serious: No
  Sender: FDA-Public Use
  Company Number: US-LEO Pharma-344781

PATIENT
  Age: 66 Year
  Sex: Female

DRUGS (2)
  1. ADBRY [Suspect]
     Active Substance: TRALOKINUMAB-LDRM
     Indication: Product used for unknown indication
     Dosage: DOSAGE : 600 MG THEN AT 300 MG EVERY TWO WEEKS SUBCUTANEOUSLY
     Route: 058
  2. ADBRY [Suspect]
     Active Substance: TRALOKINUMAB-LDRM
     Indication: Product used for unknown indication
     Dosage: DOSAGE : 600 MG THEN AT 300 MG EVERY TWO WEEKS SUBCUTANEOUSLY
     Dates: start: 202205

REACTIONS (4)
  - Rash pruritic [Unknown]
  - Peripheral swelling [Unknown]
  - Swelling face [Unknown]
  - Dyspnoea [Unknown]

NARRATIVE: CASE EVENT DATE: 20220810
